FAERS Safety Report 19352654 (Version 1)
Quarter: 2021Q2

REPORT INFORMATION
  Report Type: Spontaneous
  Country: JP (occurrence: JP)
  Receive Date: 20210601
  Receipt Date: 20210601
  Transmission Date: 20210717
  Serious: Yes (Hospitalization, Other)
  Sender: FDA-Public Use
  Company Number: JP-FERRINGPH-2021FE03322

PATIENT
  Sex: Male

DRUGS (2)
  1. GONAX [Suspect]
     Active Substance: DEGARELIX
     Indication: PROSTATE CANCER
     Dosage: 80 MG, MONTHLY
     Route: 058
     Dates: start: 20210212
  2. GONAX [Suspect]
     Active Substance: DEGARELIX
     Indication: PROSTATE CANCER
     Dosage: 240 MG, EVERY 3RD MONTH
     Route: 058
     Dates: start: 20201119

REACTIONS (8)
  - Off label use [Unknown]
  - Thyroid cancer [Unknown]
  - Product quality issue [Unknown]
  - Condition aggravated [Unknown]
  - Accidental underdose [Unknown]
  - Intercepted product administration error [Unknown]
  - Incorrect dose administered [Unknown]
  - Prescribed overdose [Unknown]

NARRATIVE: CASE EVENT DATE: 20210212
